FAERS Safety Report 10080432 (Version 1)
Quarter: 2014Q2

REPORT INFORMATION
  Report Type: Report from Study
  Country: US (occurrence: US)
  Receive Date: 20140416
  Receipt Date: 20140416
  Transmission Date: 20141212
  Serious: Yes (Hospitalization)
  Sender: FDA-Public Use
  Company Number: PHHO2014US005105

PATIENT
  Age: 20 Year
  Sex: Male

DRUGS (4)
  1. MENB RECOM+OMV [Suspect]
     Indication: IMMUNISATION
     Route: 030
     Dates: start: 20140307, end: 20140307
  2. PROMETHAZINE HCL TABLETS USP [Suspect]
     Indication: VOMITING
  3. CODEINE [Suspect]
     Indication: VOMITING
  4. ALLEGRA [Concomitant]
     Indication: HYPERSENSITIVITY
     Dosage: 180 MG, DAILY
     Dates: start: 20130510

REACTIONS (1)
  - Pneumonia [Recovered/Resolved]
